FAERS Safety Report 16164278 (Version 7)
Quarter: 2019Q3

REPORT INFORMATION
  Report Type: Spontaneous
  Country: PL (occurrence: PL)
  Receive Date: 20190405
  Receipt Date: 20190923
  Transmission Date: 20191004
  Serious: Yes (Hospitalization, Other)
  Sender: FDA-Public Use
  Company Number: PHHY2019PL061017

PATIENT
  Age: 67 Year
  Sex: Female

DRUGS (19)
  1. ACETYLSALICYLIC ACID [Suspect]
     Active Substance: ASPIRIN
     Indication: STENT PLACEMENT
  2. EPLERENONE. [Suspect]
     Active Substance: EPLERENONE
     Indication: ACUTE MYOCARDIAL INFARCTION
     Dosage: 50 MG, QD
     Route: 065
  3. PERAZINE [Suspect]
     Active Substance: PERAZINE
     Indication: PRODUCT USED FOR UNKNOWN INDICATION
     Dosage: 200 MG, QD
     Route: 065
  4. ZOLPIDEM [Interacting]
     Active Substance: ZOLPIDEM TARTRATE
     Indication: SLEEP DISORDER
     Dosage: 40 MG, QD
     Route: 065
  5. EPLERENONE. [Suspect]
     Active Substance: EPLERENONE
     Indication: STENT PLACEMENT
  6. ZOFENOPRIL [Suspect]
     Active Substance: ZOFENOPRIL
     Indication: ACUTE MYOCARDIAL INFARCTION
     Dosage: 7.5 MG, QD
     Route: 065
  7. ZOLPIDEM [Interacting]
     Active Substance: ZOLPIDEM TARTRATE
     Indication: INSOMNIA
     Dosage: DOSE REDUCTION OF 1/4 EVERY 1014
     Route: 065
  8. TICAGRELOR. [Interacting]
     Active Substance: TICAGRELOR
     Indication: ACUTE MYOCARDIAL INFARCTION
     Dosage: 180 MG, QD
     Route: 065
  9. TICAGRELOR. [Interacting]
     Active Substance: TICAGRELOR
     Indication: STENT PLACEMENT
  10. ZOLPIDEM [Suspect]
     Active Substance: ZOLPIDEM TARTRATE
     Indication: INITIAL INSOMNIA
     Dosage: 10 MG, QD (BEFORE SLEEP)
     Route: 065
  11. ACETYLSALICYLIC ACID [Suspect]
     Active Substance: ASPIRIN
     Indication: ACUTE CORONARY SYNDROME
     Dosage: 100 MG, QD
     Route: 065
  12. MELATONIN [Interacting]
     Active Substance: MELATONIN
     Indication: INITIAL INSOMNIA
  13. MELATONIN [Interacting]
     Active Substance: MELATONIN
     Indication: INSOMNIA
     Dosage: 5 MG, QD (AT 10^ O CLOCK)
     Route: 065
  14. EPLERENONE. [Suspect]
     Active Substance: EPLERENONE
     Indication: ACUTE CORONARY SYNDROME
  15. ZOLPIDEM [Interacting]
     Active Substance: ZOLPIDEM TARTRATE
     Dosage: 10 MG, QD (AT A DOSE OF 10 MG AT BEDTIME)
     Route: 065
  16. TICAGRELOR. [Interacting]
     Active Substance: TICAGRELOR
     Indication: ACUTE CORONARY SYNDROME
     Dosage: 180 MG, BID
     Route: 048
  17. ZOFENOPRIL [Suspect]
     Active Substance: ZOFENOPRIL
     Indication: STENT PLACEMENT
     Dosage: 8 MG, QD
     Route: 065
  18. HYDROXYZINE [Suspect]
     Active Substance: HYDROXYZINE HYDROCHLORIDE
     Indication: PRODUCT USED FOR UNKNOWN INDICATION
     Dosage: 50 MG, QD
     Route: 065
  19. ZOFENOPRIL [Suspect]
     Active Substance: ZOFENOPRIL
     Indication: ACUTE CORONARY SYNDROME

REACTIONS (17)
  - Memory impairment [Unknown]
  - Drug ineffective [Unknown]
  - Disturbance in attention [Unknown]
  - Intentional product use issue [Unknown]
  - Incorrect dose administered [Unknown]
  - Therapeutic product effect decreased [Unknown]
  - Sleep disorder [Unknown]
  - Hypoaesthesia [Unknown]
  - Tachyphylaxis [Unknown]
  - Overdose [Unknown]
  - Angina pectoris [Unknown]
  - Attention deficit/hyperactivity disorder [Unknown]
  - Chest pain [Unknown]
  - Drug interaction [Unknown]
  - Vascular stent thrombosis [Unknown]
  - Intentional product misuse [Unknown]
  - Drug abuse [Unknown]
